FAERS Safety Report 5794916-1 (Version None)
Quarter: 2008Q2

REPORT INFORMATION
  Report Type: 
  Country: None (occurrence: None)
  Receive Date: 20080630
  Receipt Date: 20080617
  Transmission Date: 20081010
  Serious: Yes (Hospitalization)
  Sender: FDA-Public Use
  Company Number: FR-ELI_LILLY_AND_COMPANY-FR200806004114

PATIENT
  Sex: Female
  Weight: 50 kg

DRUGS (4)
  1. ENZASTAURIN (LY317615) [Suspect]
     Indication: DIFFUSE LARGE B-CELL LYMPHOMA
     Dosage: 600 MG, DAILY (1/D)
     Route: 048
     Dates: start: 20080417
  2. RITUXIMAB [Suspect]
     Indication: DIFFUSE LARGE B-CELL LYMPHOMA
     Dosage: 375 MG/M2 ON DAY 1 EVERY 2 WEEKS
     Route: 042
     Dates: start: 20080417
  3. GEMCITABINE HCL [Suspect]
     Indication: DIFFUSE LARGE B-CELL LYMPHOMA
     Dosage: 1000 MG/M2 ON DAY 1 EVERY 2 WEEKS.
     Route: 042
     Dates: start: 20080418
  4. OXALIPLATIN [Suspect]
     Indication: DIFFUSE LARGE B-CELL LYMPHOMA
     Dosage: UNK ON DAY 2 EVERY 2 WEEKS
     Route: 042
     Dates: start: 20080418

REACTIONS (1)
  - RENAL HAEMORRHAGE [None]
